FAERS Safety Report 13540599 (Version 6)
Quarter: 2017Q2

REPORT INFORMATION
  Report Type: Report from Study
  Country: BE (occurrence: BE)
  Receive Date: 20170512
  Receipt Date: 20170626
  Transmission Date: 20170830
  Serious: Yes (Other)
  Sender: FDA-Public Use
  Company Number: BE-BAYER-2017-071656

PATIENT
  Age: 74 Year
  Sex: Male

DRUGS (11)
  1. ALDACTONE [Concomitant]
     Active Substance: SPIRONOLACTONE
  2. ISOPTINE [Concomitant]
     Active Substance: VERAPAMIL HYDROCHLORIDE
  3. STIVARGA [Suspect]
     Active Substance: REGORAFENIB
     Indication: COLORECTAL CANCER METASTATIC
     Dosage: 80 MG, QD
     Dates: start: 20170327, end: 20170509
  4. BURINEX [Concomitant]
     Active Substance: BUMETANIDE
  5. BISOPROLOL [Concomitant]
     Active Substance: BISOPROLOL
  6. XARELTO [Concomitant]
     Active Substance: RIVAROXABAN
  7. STIVARGA [Suspect]
     Active Substance: REGORAFENIB
     Indication: COLORECTAL CANCER METASTATIC
     Dosage: 80 MG DAILY DOSE
     Dates: start: 20170520, end: 20170614
  8. PANTOPRAZOLE SODIUM. [Concomitant]
     Active Substance: PANTOPRAZOLE SODIUM
  9. CRESTOR [Concomitant]
     Active Substance: ROSUVASTATIN CALCIUM
  10. LITICAN [Concomitant]
     Active Substance: ALIZAPRIDE HYDROCHLORIDE
  11. LANOXIN [Concomitant]
     Active Substance: DIGOXIN

REACTIONS (21)
  - Palmar-plantar erythrodysaesthesia syndrome [None]
  - Limb injury [None]
  - Fatigue [Not Recovered/Not Resolved]
  - Dysphonia [Not Recovered/Not Resolved]
  - Musculoskeletal chest pain [Not Recovered/Not Resolved]
  - Erythema [None]
  - Colorectal cancer metastatic [None]
  - Weight decreased [None]
  - Palmar-plantar erythrodysaesthesia syndrome [Not Recovered/Not Resolved]
  - Decreased appetite [None]
  - Constipation [Not Recovered/Not Resolved]
  - Balance disorder [Not Recovered/Not Resolved]
  - Wound infection [Recovering/Resolving]
  - Decreased appetite [Not Recovered/Not Resolved]
  - Weight decreased [None]
  - Fatigue [None]
  - Skin disorder [None]
  - Wound complication [Recovering/Resolving]
  - Nausea [None]
  - Decreased appetite [None]
  - Dysphonia [None]

NARRATIVE: CASE EVENT DATE: 2017
